FAERS Safety Report 18920919 (Version 4)
Quarter: 2023Q2

REPORT INFORMATION
  Report Type: Spontaneous
  Country: US (occurrence: US)
  Receive Date: 20210222
  Receipt Date: 20230609
  Transmission Date: 20230721
  Serious: Yes (Other)
  Sender: FDA-Public Use
  Company Number: US-SA-SAC20210218000711

PATIENT
  Age: 38 Year
  Sex: Female
  Weight: 48 kg

DRUGS (4)
  1. AUBAGIO [Suspect]
     Active Substance: TERIFLUNOMIDE
     Indication: Multiple sclerosis
     Dosage: 14 MG, QD
     Route: 048
     Dates: start: 20190520
  2. AUBAGIO [Suspect]
     Active Substance: TERIFLUNOMIDE
     Indication: Extrapyramidal disorder
  3. AUBAGIO [Suspect]
     Active Substance: TERIFLUNOMIDE
     Indication: Movement disorder
  4. GABAPENTIN [Concomitant]
     Active Substance: GABAPENTIN
     Dosage: 100MG TID PRN

REACTIONS (4)
  - Multiple sclerosis [Not Recovered/Not Resolved]
  - Multiple sclerosis relapse [Unknown]
  - Vascular skin disorder [Unknown]
  - Product use in unapproved indication [Unknown]

NARRATIVE: CASE EVENT DATE: 20210101
